FAERS Safety Report 24996095 (Version 1)
Quarter: 2025Q1

REPORT INFORMATION
  Report Type: Spontaneous
  Country: US (occurrence: US)
  Receive Date: 20250221
  Receipt Date: 20250221
  Transmission Date: 20250409
  Serious: No
  Sender: CATALYST PHARMA
  Company Number: US-CATALYST PHARMACEUTICALS-US-CATA-25-00068

PATIENT
  Age: 7 Year
  Sex: Male
  Weight: 32.395 kg

DRUGS (18)
  1. AGAMREE [Suspect]
     Active Substance: VAMOROLONE
     Indication: Duchenne muscular dystrophy
     Dosage: 4.9 ML DAILY
     Route: 048
     Dates: start: 20241203
  2. ALBUTEROL [Concomitant]
     Active Substance: ALBUTEROL
     Indication: Dyspnoea
     Route: 065
  3. CHILDRENS MOTRIN [Concomitant]
     Active Substance: IBUPROFEN
     Indication: Pain
     Route: 065
  4. CHILDRENS MOTRIN [Concomitant]
     Active Substance: IBUPROFEN
     Indication: Pyrexia
  5. DELSYM COUGH+ CHEST CONGESTION DM [Concomitant]
     Indication: Cough
     Route: 065
  6. DELSYM COUGH+ CHEST CONGESTION DM [Concomitant]
     Indication: Nasopharyngitis
  7. MINERALS\VITAMINS [Concomitant]
     Active Substance: MINERALS\VITAMINS
     Indication: Immune system disorder
     Dosage: ONE TABLET DAILY
     Route: 048
  8. INVEGA [Concomitant]
     Active Substance: PALIPERIDONE
     Indication: Aggression
     Dosage: 3 MG DAILY
     Route: 065
  9. IPRATROPIUM [Concomitant]
     Active Substance: IPRATROPIUM
     Indication: Dyspnoea
     Route: 065
  10. MELATONIN [Concomitant]
     Active Substance: MELATONIN
     Indication: Sleep disorder
     Route: 065
  11. MUPIROCIN [Concomitant]
     Active Substance: MUPIROCIN
     Indication: Skin infection
     Route: 065
  12. SERTRALINE [Concomitant]
     Active Substance: SERTRALINE HYDROCHLORIDE
     Indication: Anxiety
     Dosage: 125 MG DAILY
     Route: 065
  13. CHILDRENS TYLENOL [Concomitant]
     Active Substance: ACETAMINOPHEN
     Indication: Cough
     Route: 065
  14. CHILDRENS TYLENOL [Concomitant]
     Active Substance: ACETAMINOPHEN
     Indication: Nasopharyngitis
  15. TYLENOL [Concomitant]
     Active Substance: ACETAMINOPHEN
     Indication: Pain
     Route: 048
  16. TYLENOL [Concomitant]
     Active Substance: ACETAMINOPHEN
     Indication: Pyrexia
  17. VICKS NYQUIL [Concomitant]
     Active Substance: ACETAMINOPHEN\DEXTROMETHORPHAN HYDROBROMIDE\DOXYLAMINE SUCCINATE
     Indication: Nasopharyngitis
     Route: 065
  18. VICKS NYQUIL [Concomitant]
     Active Substance: ACETAMINOPHEN\DEXTROMETHORPHAN HYDROBROMIDE\DOXYLAMINE SUCCINATE
     Indication: Cough

REACTIONS (3)
  - Fall [Not Recovered/Not Resolved]
  - Head discomfort [Not Recovered/Not Resolved]
  - Heart rate increased [Not Recovered/Not Resolved]

NARRATIVE: CASE EVENT DATE: 20250110
